FAERS Safety Report 9927822 (Version 5)
Quarter: 2014Q4

REPORT INFORMATION
  Report Type: Spontaneous
  Country: JP (occurrence: None)
  Receive Date: 20140220
  Receipt Date: 20141107
  Transmission Date: 20150529
  Serious: Yes (Death, Hospitalization)
  Sender: FDA-Public Use
  Company Number: AXC-2014-000104

PATIENT
  Age: 58 Year
  Sex: Male

DRUGS (11)
  1. URSODEOXYCHOLIC ACID [Suspect]
     Active Substance: URSODIOL
     Indication: HEPATIC FUNCTION ABNORMAL
     Route: 048
     Dates: end: 20111108
  2. ARTIST (CARVEDILOL) (CARVEDILOL) [Suspect]
     Active Substance: CARVEDILOL
     Indication: HYPERTENSION
     Route: 048
     Dates: end: 20111108
  3. PRAZAXA (DABIGATRAN ETEXILATE MESILATE) UNKNOWN? [Concomitant]
  4. SUNRYTHM (PILSICAINIDE HYDROCHLORIDE) UNKNOWN [Concomitant]
  5. DAIKENCHUTO [Suspect]
     Active Substance: HERBALS
     Indication: ABDOMINAL DISTENSION
     Dosage: 3 PACKS, QD, ORAL
     Route: 048
     Dates: end: 20111108
  6. VASOLAN /00014302/ (VERAPAMIL HYDROCHLORIDE) UNKNOWN [Concomitant]
  7. PARIET (RABEPRAZOLE SODIUM) (20 MG, GASTRO-RESISTANT TABLET) (RABEPRAZOLE SODIUM) [Suspect]
     Active Substance: RABEPRAZOLE SODIUM
     Indication: GASTRIC ULCER
     Route: 048
     Dates: end: 20111108
  8. MAINTATE (BISOPROLOL FUMARATE) UNKNOWN [Concomitant]
  9. HERBESSER [Suspect]
     Active Substance: DILTIAZEM HYDROCHLORIDE
     Indication: HYPERTENSION
     Route: 048
     Dates: start: 20111017, end: 20111108
  10. ANCARON (AMIODARONE HYDROCHLORIDE) UNKNOWN? [Concomitant]
  11. MAGLAX (MAGNESIUM OXIDE) UNKNOWN [Concomitant]

REACTIONS (12)
  - Shock [None]
  - Toxic epidermal necrolysis [None]
  - Cardiac hypertrophy [None]
  - Hypertension [None]
  - Respiratory disorder [None]
  - Acute kidney injury [None]
  - Hepatic failure [None]
  - Acidosis [None]
  - Depressed level of consciousness [None]
  - Atrial fibrillation [None]
  - Cardio-respiratory arrest [None]
  - Cardiac failure acute [None]

NARRATIVE: CASE EVENT DATE: 20110914
